FAERS Safety Report 10068696 (Version 1)
Quarter: 2014Q2

REPORT INFORMATION
  Report Type: Spontaneous
  Country: US (occurrence: US)
  Receive Date: 20140409
  Receipt Date: 20140409
  Transmission Date: 20141212
  Serious: No
  Sender: FDA-Public Use
  Company Number: US-MYLANLABS-2014S1001580

PATIENT
  Sex: Female

DRUGS (1)
  1. METOPROLOL SUCCINATE EXTENDED-RELEASE TABLETS USP [Suspect]
     Route: 048
     Dates: end: 201401

REACTIONS (2)
  - Malaise [Not Recovered/Not Resolved]
  - Reaction to drug excipients [Not Recovered/Not Resolved]
